FAERS Safety Report 7019178-9 (Version None)
Quarter: 2010Q3

REPORT INFORMATION
  Report Type: 
  Country: None (occurrence: None)
  Receive Date: 20100928
  Receipt Date: 20100913
  Transmission Date: 20110219
  Serious: Yes (Other)
  Sender: FDA-Public Use
  Company Number: FR-GENENTECH-306881

PATIENT
  Sex: Female

DRUGS (1)
  1. XOLAIR [Suspect]
     Indication: ASTHMA
     Dosage: 375 MG, Q2W
     Dates: start: 20091001, end: 20100901

REACTIONS (4)
  - LYMPHADENOPATHY [None]
  - PARAESTHESIA [None]
  - URTICARIA [None]
  - VIITH NERVE PARALYSIS [None]
